FAERS Safety Report 6205205-5 (Version None)
Quarter: 2009Q2

REPORT INFORMATION
  Report Type: 
  Country: None (occurrence: None)
  Receive Date: 20090527
  Receipt Date: 20090303
  Transmission Date: 20091009
  Serious: No
  Sender: FDA-Public Use
  Company Number: US-ABBOTT-09P-163-0560227-00

PATIENT
  Sex: Female

DRUGS (4)
  1. SIMCOR [Suspect]
     Indication: DRUG USE FOR UNKNOWN INDICATION
     Dosage: 500/20MG, ONLY USED SAMPLES PROVIDED BY PHYSICIAN
  2. NAPROSYN [Concomitant]
     Indication: DRUG USE FOR UNKNOWN INDICATION
  3. OTHER UNKNOWN MEDICATIONS [Concomitant]
     Indication: DRUG USE FOR UNKNOWN INDICATION
  4. ASPIRIN [Concomitant]
     Indication: DRUG USE FOR UNKNOWN INDICATION
     Dosage: SHOULD BE TAKING, SHE IS FORGETFUL AND MY NOT BE USING IT

REACTIONS (6)
  - ERYTHEMA [None]
  - FLUSHING [None]
  - GAIT DISTURBANCE [None]
  - MYALGIA [None]
  - OEDEMA PERIPHERAL [None]
  - SKIN BURNING SENSATION [None]
